FAERS Safety Report 8229748-8 (Version None)
Quarter: 2012Q1

REPORT INFORMATION
  Report Type: 
  Country: None (occurrence: None)
  Receive Date: 20120322
  Receipt Date: 20120319
  Transmission Date: 20120608
  Serious: Yes (Disabling)
  Sender: FDA-Public Use
  Company Number: US-ALLERGAN-1202489US

PATIENT
  Age: 47 Year
  Sex: Female

DRUGS (16)
  1. TYLENOL [Concomitant]
     Indication: PAIN
     Dosage: 1 DF, BID
     Route: 048
  2. KLONOPIN [Concomitant]
     Indication: INSOMNIA
     Dosage: 1 MG, UNK
     Route: 048
  3. OMEPRAZOLE [Concomitant]
     Indication: GASTROOESOPHAGEAL REFLUX DISEASE
     Dosage: UNK
     Route: 048
  4. AMBIEN [Concomitant]
     Indication: INSOMNIA
     Dosage: 10 MG, QHS
     Route: 048
  5. BOTULINUM TOXIN TYPE A [Suspect]
     Indication: TORTICOLLIS
     Dosage: 400 UNITS, SINGLE
     Route: 030
     Dates: start: 20120131, end: 20120131
  6. BOTULINUM TOXIN TYPE B [Concomitant]
     Indication: FIBROMYALGIA
  7. VICOPROFEN [Concomitant]
     Indication: PAIN
     Dosage: UNK MG, TID
     Route: 048
  8. BOTULINUM TOXIN TYPE B [Concomitant]
     Indication: TORTICOLLIS
  9. IBUPROFEN (ADVIL) [Concomitant]
     Indication: PAIN
     Dosage: 1 DF, TID
     Route: 048
  10. LEVOTHROID [Concomitant]
     Indication: HYPOTHYROIDISM
     Dosage: 125 A?G, UNK
     Route: 048
  11. OXYCODONE HCL [Concomitant]
     Indication: PAIN
     Dosage: 5 MG, PRN
     Route: 048
  12. ALLEGRA [Concomitant]
     Indication: HYPERSENSITIVITY
     Dosage: 180 MG, UNK
     Route: 048
  13. BOTULINUM TOXIN TYPE A [Suspect]
     Indication: FIBROMYALGIA
  14. SOMA [Concomitant]
     Indication: PAIN
     Dosage: 350 MG, TID
     Route: 048
  15. PEPCID [Concomitant]
     Indication: PRODUCT USED FOR UNKNOWN INDICATION
     Dosage: 30 MG, UNK
     Route: 048
  16. XANAX XR [Concomitant]
     Indication: NERVOUSNESS
     Dosage: 0.25 MG, UNK
     Route: 048

REACTIONS (2)
  - HYPOAESTHESIA [None]
  - MUSCLE SPASMS [None]
